FAERS Safety Report 8108620-8 (Version None)
Quarter: 2012Q1

REPORT INFORMATION
  Report Type: 
  Country: None (occurrence: None)
  Receive Date: 20120202
  Receipt Date: 20120119
  Transmission Date: 20120608
  Serious: Yes (Other)
  Sender: FDA-Public Use
  Company Number: IL-CELGENEUS-082-21880-11112845

PATIENT
  Age: 65 Year
  Sex: Male

DRUGS (6)
  1. REVLIMID [Suspect]
     Indication: MULTIPLE MYELOMA
     Dosage: 25 MILLIGRAM
     Route: 048
     Dates: start: 20110109
  2. RECORMON [Concomitant]
     Dosage: 1428.5714
     Route: 058
     Dates: start: 20110524
  3. ASPIRIN [Concomitant]
     Dosage: 75 MILLIGRAM
     Route: 058
     Dates: start: 20080921
  4. REPAGLINIDE [Concomitant]
     Indication: DIABETES MELLITUS
     Dosage: 1.5 MILLIGRAM
     Route: 058
     Dates: start: 20111010
  5. BONEFOS [Concomitant]
     Dosage: 800 MILLIGRAM
     Route: 058
     Dates: start: 20090702
  6. SIMVACOR [Concomitant]
     Dosage: 40 MILLIGRAM
     Route: 058
     Dates: start: 20080921

REACTIONS (1)
  - SQUAMOUS CELL CARCINOMA OF SKIN [None]
